FAERS Safety Report 4502153-3 (Version None)
Quarter: 2004Q4

REPORT INFORMATION
  Report Type: 
  Country: None (occurrence: None)
  Receive Date: 20041116
  Receipt Date: 20041104
  Transmission Date: 20050328
  Serious: Yes (Death, Hospitalization)
  Sender: FDA-Public Use
  Company Number: FR-JNJFOC-20041102135

PATIENT
  Age: 87 Year
  Sex: Female

DRUGS (10)
  1. ACETAMINOPHEN AND TRAMADOL HCL [Suspect]
     Dosage: 6 TABLETS DAILY.
     Route: 049
  2. ACETAMINOPHEN AND TRAMADOL HCL [Suspect]
     Dosage: 3 TABLETS 2 IN 1 DAY.
     Route: 049
  3. LASILIX [Concomitant]
     Indication: CARDIAC FAILURE
     Route: 049
  4. HYPERIUM [Concomitant]
     Route: 049
  5. INHIBITOR OF CONVERSION ENZYME NOS [Concomitant]
  6. TRIATEC [Concomitant]
     Indication: ARRHYTHMIA
     Route: 049
  7. PREVISCAN [Concomitant]
     Route: 049
  8. PREVISCAN [Concomitant]
     Indication: ARRHYTHMIA
     Route: 049
  9. NICARDIPINE HCL [Concomitant]
     Route: 049
  10. BLOOD TRANSFUSION [Concomitant]
     Route: 065

REACTIONS (3)
  - ASTHENIA [None]
  - HEPATOCELLULAR DAMAGE [None]
  - TRANSAMINASES INCREASED [None]
